FAERS Safety Report 6666000-6 (Version None)
Quarter: 2010Q2

REPORT INFORMATION
  Report Type: 
  Country: None (occurrence: None)
  Receive Date: 20100402
  Receipt Date: 20100324
  Transmission Date: 20101027
  Serious: Yes (Hospitalization)
  Sender: FDA-Public Use
  Company Number: US-CEPHALON-2010001756

PATIENT
  Sex: Male
  Weight: 104 kg

DRUGS (6)
  1. PROVIGIL [Suspect]
     Indication: NARCOLEPSY
     Route: 048
     Dates: start: 20090301
  2. TRICOR [Concomitant]
     Dates: start: 20050101
  3. NIASPAN [Concomitant]
     Dates: start: 20070101
  4. MULTI-VITAMIN [Concomitant]
  5. FISH OIL [Concomitant]
  6. PROZAC [Concomitant]
     Dates: start: 20070101

REACTIONS (4)
  - DRUG PRESCRIBING ERROR [None]
  - DRUG TOLERANCE [None]
  - GASTROINTESTINAL INFLAMMATION [None]
  - PHOTOSENSITIVITY REACTION [None]
